FAERS Safety Report 8440622-4 (Version None)
Quarter: 2012Q2

REPORT INFORMATION
  Report Type: 
  Country: None (occurrence: None)
  Receive Date: 20120615
  Receipt Date: 20120611
  Transmission Date: 20120825
  Serious: Yes (Hospitalization, Disabling)
  Sender: FDA-Public Use
  Company Number: US-MERCK-1203USA03378

PATIENT
  Age: 66 Year
  Sex: Female
  Weight: 69 kg

DRUGS (3)
  1. FOSAMAX [Suspect]
     Indication: OSTEOPENIA
     Route: 048
     Dates: start: 20020201, end: 20090901
  2. FOSAMAX [Suspect]
     Indication: OSTEOPOROSIS PROPHYLAXIS
     Route: 048
     Dates: start: 20020201, end: 20090901
  3. VITAMINS (UNSPECIFIED) [Concomitant]
     Route: 065
     Dates: start: 19900101

REACTIONS (36)
  - OSTEOARTHRITIS [None]
  - INTERVERTEBRAL DISC SPACE NARROWING [None]
  - PAIN IN EXTREMITY [None]
  - COLONIC POLYP [None]
  - BONE DISORDER [None]
  - CYSTOCELE [None]
  - DEPRESSION [None]
  - VITAMIN D DEFICIENCY [None]
  - RADICULITIS LUMBOSACRAL [None]
  - OSTEOPOROSIS [None]
  - RECTOCELE [None]
  - OVARIAN DISORDER [None]
  - ABDOMINAL DISTENSION [None]
  - FALL [None]
  - ILEUS PARALYTIC [None]
  - HYPERTENSION [None]
  - RASH MACULAR [None]
  - DIVERTICULUM [None]
  - SOMNOLENCE [None]
  - LOW TURNOVER OSTEOPATHY [None]
  - PATHOLOGICAL FRACTURE [None]
  - FEMUR FRACTURE [None]
  - MULTIPLE FRACTURES [None]
  - HYPOCALCAEMIA [None]
  - GASTRIC POLYPS [None]
  - INTERVERTEBRAL DISC DISORDER [None]
  - SPINAL OSTEOARTHRITIS [None]
  - SLEEP APNOEA SYNDROME [None]
  - CARBOHYDRATE ANTIGEN 125 INCREASED [None]
  - COUGH [None]
  - NEUROLOGICAL SYMPTOM [None]
  - NEPHROLITHIASIS [None]
  - GASTROOESOPHAGEAL REFLUX DISEASE [None]
  - WISDOM TEETH REMOVAL [None]
  - RESTLESS LEGS SYNDROME [None]
  - CORONARY ARTERY DISEASE [None]
